FAERS Safety Report 10265954 (Version 3)
Quarter: 2014Q3

REPORT INFORMATION
  Report Type: Spontaneous
  Country: JP (occurrence: JP)
  Receive Date: 20140627
  Receipt Date: 20140728
  Transmission Date: 20150326
  Serious: Yes (Hospitalization)
  Sender: FDA-Public Use
  Company Number: JP-NAPPMUNDI-GBR-2014-0018875

PATIENT
  Age: 87 Year
  Sex: Male
  Weight: 52 kg

DRUGS (12)
  1. NORSPAN [Suspect]
     Active Substance: BUPRENORPHINE
     Indication: INFECTIVE SPONDYLITIS
     Dosage: 5 MCG, Q1H
     Route: 062
     Dates: start: 20140527, end: 20140603
  2. MOHRUS L [Concomitant]
     Active Substance: KETOPROFEN
     Dosage: 40 MG, DAILY
     Route: 061
     Dates: start: 20140215
  3. BROTIZOLAM [Concomitant]
     Active Substance: BROTIZOLAM
     Indication: INSOMNIA
     Dosage: 0.25 MG, DAILY
     Route: 048
     Dates: start: 20140218
  4. AMLODIPINE BESILATE [Concomitant]
     Active Substance: AMLODIPINE BESYLATE
     Indication: HYPERTENSION
     Dosage: 2.5 MG, DAILY
     Route: 065
     Dates: start: 20140326
  5. LYRICA [Concomitant]
     Active Substance: PREGABALIN
     Indication: LUMBAR SPINAL STENOSIS
     Dosage: 225 MG, DAILY
     Route: 048
     Dates: start: 20140515
  6. NAUZELIN [Concomitant]
     Active Substance: DOMPERIDONE
     Indication: PROPHYLAXIS
     Dosage: 30 MG, DAILY
     Route: 065
     Dates: start: 20140602, end: 20140616
  7. MAGMITT [Concomitant]
     Active Substance: MAGNESIUM OXIDE
     Indication: PROPHYLAXIS
     Dosage: 750 MG, DAILY
     Route: 065
     Dates: start: 20140602, end: 20140616
  8. SHAKUYAKUKANZOTO [Suspect]
     Active Substance: HERBALS
     Indication: MUSCLE SPASMS
     Dosage: 7.5 G, DAILY
     Route: 065
     Dates: end: 20140603
  9. MINOMYCIN [Concomitant]
     Active Substance: MINOCYCLINE HYDROCHLORIDE
     Indication: INFECTIVE SPONDYLITIS
     Dosage: 200 MG, DAILY
     Route: 065
     Dates: start: 20140324
  10. BIOFERMIN R [Concomitant]
     Active Substance: BACILLUS SUBTILIS\LACTOBACILLUS ACIDOPHILUS\STREPTOCOCCUS FAECAIS
     Dosage: 18 MG, DAILY
     Route: 065
  11. HYPEN                              /00613801/ [Suspect]
     Active Substance: ETODOLAC
     Indication: BACK PAIN
     Dosage: 400 MG, DAILY
     Route: 048
     Dates: end: 20140603
  12. LOXOPROFEN SODIUM [Concomitant]
     Active Substance: LOXOPROFEN SODIUM
     Indication: INFECTIVE SPONDYLITIS
     Route: 048

REACTIONS (3)
  - Pneumonia [Unknown]
  - Altered state of consciousness [Recovered/Resolved]
  - Delirium [Recovered/Resolved]

NARRATIVE: CASE EVENT DATE: 20140531
